FAERS Safety Report 25586033 (Version 1)
Quarter: 2025Q3

REPORT INFORMATION
  Report Type: Spontaneous
  Country: GB (occurrence: GB)
  Receive Date: 20250721
  Receipt Date: 20250721
  Transmission Date: 20251021
  Serious: Yes (Other)
  Sender: MYLAN
  Company Number: GB-MHRA-36144290

PATIENT
  Age: 54 Year
  Sex: Male
  Weight: 90 kg

DRUGS (4)
  1. SERTRALINE [Suspect]
     Active Substance: SERTRALINE HYDROCHLORIDE
     Indication: Anxiety
  2. SERTRALINE [Suspect]
     Active Substance: SERTRALINE HYDROCHLORIDE
     Route: 048
  3. SERTRALINE [Suspect]
     Active Substance: SERTRALINE HYDROCHLORIDE
     Route: 048
  4. SERTRALINE [Suspect]
     Active Substance: SERTRALINE HYDROCHLORIDE

REACTIONS (2)
  - Photosensitivity reaction [Recovering/Resolving]
  - Erythema [Recovering/Resolving]

NARRATIVE: CASE EVENT DATE: 20250622
